FAERS Safety Report 19132593 (Version 1)
Quarter: 2021Q2

REPORT INFORMATION
  Report Type: Spontaneous
  Country: TR (occurrence: TR)
  Receive Date: 20210413
  Receipt Date: 20210413
  Transmission Date: 20210717
  Serious: Yes (Other)
  Sender: FDA-Public Use
  Company Number: TR-ZO SKIN HEALTH-2020ZOS00017

PATIENT
  Age: 49 Year
  Sex: Female

DRUGS (6)
  1. TRETINOIN. [Suspect]
     Active Substance: TRETINOIN
     Indication: ACUTE PROMYELOCYTIC LEUKAEMIA
     Dosage: 45 MG/M2, 1X/DAY
     Route: 065
  2. CYTOSINE ARABINOSIDE [Concomitant]
     Active Substance: CYTARABINE
     Indication: ACUTE PROMYELOCYTIC LEUKAEMIA
     Dosage: 100 MG/M2, 1X/DAY FOR 7 DAYS
     Route: 065
  3. PIPERACILLIN/TAZOBACTAM [Concomitant]
     Active Substance: PIPERACILLIN SODIUM\TAZOBACTAM SODIUM
     Indication: FEBRILE NEUTROPENIA
     Route: 065
  4. DAUNORUBICIN [Concomitant]
     Active Substance: DAUNORUBICIN
     Indication: ACUTE PROMYELOCYTIC LEUKAEMIA
     Dosage: 60 MG/M2, 1X/DAY FOR 3 DAYS
     Route: 065
  5. POSACONAZOLE [Suspect]
     Active Substance: POSACONAZOLE
     Indication: FEBRILE NEUTROPENIA
     Dosage: 300 MG, 1X/DAY
     Route: 065
  6. IDARUBICIN [Concomitant]
     Active Substance: IDARUBICIN
     Indication: ACUTE PROMYELOCYTIC LEUKAEMIA
     Dosage: 5 MG/M2, 1X/DAY FOR 4 DAYS (SECOND COURSE OF TRETINOIN)
     Route: 065

REACTIONS (3)
  - Drug interaction [Recovered/Resolved]
  - Differentiation syndrome [Recovered/Resolved]
  - Hypercalcaemia [Recovered/Resolved]
